FAERS Safety Report 5008168-3 (Version None)
Quarter: 2006Q2

REPORT INFORMATION
  Report Type: 
  Country: None (occurrence: None)
  Receive Date: 20060404
  Receipt Date: 20051101
  Transmission Date: 20061013
  Serious: Yes (Other)
  Sender: FDA-Public Use
  Company Number: 2005151017

PATIENT
  Age: 9 Year
  Sex: Male
  Weight: 35.3806 kg

DRUGS (4)
  1. GEODON [Suspect]
     Indication: ILL-DEFINED DISORDER
     Dates: start: 20050501, end: 20050601
  2. TRAZODONE HCL [Suspect]
     Indication: ILL-DEFINED DISORDER
     Dates: start: 20050101
  3. RITALIN [Concomitant]
  4. CLONIDINE [Concomitant]

REACTIONS (2)
  - CONVULSION [None]
  - DYSKINESIA [None]
